FAERS Safety Report 8277808-8 (Version None)
Quarter: 2012Q1

REPORT INFORMATION
  Report Type: 
  Country: None (occurrence: None)
  Receive Date: 20120312
  Receipt Date: 20120209
  Transmission Date: 20120608
  Serious: No
  Sender: FDA-Public Use
  Company Number: 2012SP007609

PATIENT
  Sex: Female

DRUGS (2)
  1. SAPHRIS [Suspect]
     Indication: DEPRESSION
     Dosage: 5 MG, QD, SL
     Route: 060
     Dates: start: 20120208, end: 20120209
  2. SAPHRIS [Suspect]
     Indication: ANXIETY
     Dosage: 5 MG, QD, SL
     Route: 060
     Dates: start: 20120208, end: 20120209

REACTIONS (6)
  - INAPPROPRIATE SCHEDULE OF DRUG ADMINISTRATION [None]
  - HYPOAESTHESIA ORAL [None]
  - INSOMNIA [None]
  - RESTLESS LEGS SYNDROME [None]
  - CRYING [None]
  - UNDERDOSE [None]
